FAERS Safety Report 25510131 (Version 2)
Quarter: 2025Q3

REPORT INFORMATION
  Report Type: Report from Study
  Country: IN (occurrence: IN)
  Receive Date: 20250703
  Receipt Date: 20250810
  Transmission Date: 20251021
  Serious: Yes (Other)
  Sender: ALEXION PHARMACEUTICALS
  Company Number: IN-AstraZeneca-CH-00900704A

PATIENT
  Age: 73 Year
  Sex: Female
  Weight: 45 kg

DRUGS (1)
  1. DURVALUMAB [Suspect]
     Active Substance: DURVALUMAB
     Dosage: 1500 MILLILITER, Q3W
     Route: 065
     Dates: start: 20250127

REACTIONS (5)
  - Duodenal ulcer [Unknown]
  - Asthenia [Unknown]
  - Abdominal pain [Unknown]
  - Insomnia [Unknown]
  - Constipation [Unknown]
